FAERS Safety Report 14164371 (Version 2)
Quarter: 2017Q4

REPORT INFORMATION
  Report Type: Spontaneous
  Country: US (occurrence: US)
  Receive Date: 20171107
  Receipt Date: 20171120
  Transmission Date: 20180321
  Serious: Yes (Life-Threatening, Other)
  Sender: FDA-Public Use
  Company Number: US-009507513-1711USA001212

PATIENT
  Sex: Male

DRUGS (1)
  1. KEYTRUDA [Suspect]
     Active Substance: PEMBROLIZUMAB
     Indication: THYMIC CANCER METASTATIC
     Dosage: UNK, COMPLETED 5 CYCLES
     Route: 041

REACTIONS (3)
  - Product use in unapproved indication [Unknown]
  - Chromaturia [Not Recovered/Not Resolved]
  - Hepatic failure [Not Recovered/Not Resolved]
